FAERS Safety Report 6562445-3 (Version None)
Quarter: 2010Q1

REPORT INFORMATION
  Report Type: 
  Country: None (occurrence: None)
  Receive Date: 20100130
  Receipt Date: 20091214
  Transmission Date: 20100710
  Serious: No
  Sender: FDA-Public Use
  Company Number: US-ABBOTT-09P-163-0607939-00

PATIENT
  Sex: Female
  Weight: 58.566 kg

DRUGS (7)
  1. HUMIRA [Suspect]
     Indication: RHEUMATOID ARTHRITIS
     Route: 058
     Dates: start: 20081001, end: 20090601
  2. HUMIRA [Suspect]
     Route: 058
     Dates: start: 20090821, end: 20091123
  3. PROAIR HFA [Concomitant]
     Indication: ASTHMA
     Route: 055
  4. METHOTREXATE [Concomitant]
     Indication: RHEUMATOID ARTHRITIS
     Route: 048
  5. PLAQUENIL [Concomitant]
     Indication: RHEUMATOID ARTHRITIS
     Route: 048
  6. FIORICET [Concomitant]
     Indication: MIGRAINE
     Route: 048
  7. EPIPEN [Concomitant]
     Indication: HYPERSENSITIVITY
     Route: 050
     Dates: start: 20091001

REACTIONS (13)
  - ABDOMINAL PAIN UPPER [None]
  - ABDOMINOPLASTY [None]
  - ANGIOEDEMA [None]
  - BLOOD IMMUNOGLOBULIN E INCREASED [None]
  - DIARRHOEA [None]
  - HAEMORRHOIDAL HAEMORRHAGE [None]
  - INJECTION SITE PAIN [None]
  - NAUSEA [None]
  - OEDEMA PERIPHERAL [None]
  - RESPIRATORY DISORDER [None]
  - RHEUMATOID ARTHRITIS [None]
  - THROAT IRRITATION [None]
  - URTICARIA [None]
